FAERS Safety Report 7284876-9 (Version None)
Quarter: 2011Q1

REPORT INFORMATION
  Report Type: 
  Country: None (occurrence: None)
  Receive Date: 20110204
  Receipt Date: 20110204
  Transmission Date: 20110831
  Serious: No
  Sender: FDA-Public Use
  Company Number: None

PATIENT
  Age: 28 Year
  Sex: Female
  Weight: 54.4316 kg

DRUGS (1)
  1. SORIATANE [Suspect]
     Indication: GUTTATE PSORIASIS
     Dosage: PO
     Route: 048
     Dates: start: 19970501, end: 19970601

REACTIONS (7)
  - LEARNING DISABILITY [None]
  - DEPRESSION [None]
  - DRUG INEFFECTIVE [None]
  - ANXIETY [None]
  - ANGER [None]
  - PREMATURE BABY [None]
  - MATERNAL DRUGS AFFECTING FOETUS [None]
